FAERS Safety Report 7371594-1 (Version None)
Quarter: 2011Q1

REPORT INFORMATION
  Report Type: 
  Country: None (occurrence: None)
  Receive Date: 20110324
  Receipt Date: 20100916
  Transmission Date: 20110831
  Serious: Yes (Hospitalization, Other)
  Sender: FDA-Public Use
  Company Number: US-BAYER-200935574NA

PATIENT
  Sex: Female
  Weight: 61.224 kg

DRUGS (3)
  1. AZITHROMYCIN [Concomitant]
  2. APRI [Concomitant]
     Dosage: UNK
  3. YAZ [Suspect]
     Indication: ACNE
     Route: 048

REACTIONS (5)
  - INTRACRANIAL VENOUS SINUS THROMBOSIS [None]
  - THROMBOTIC STROKE [None]
  - INJURY [None]
  - PAIN [None]
  - CEREBRAL INFARCTION [None]
